FAERS Safety Report 4334210-9 (Version None)
Quarter: 2004Q2

REPORT INFORMATION
  Report Type: 
  Country: None (occurrence: None)
  Receive Date: 20040402
  Receipt Date: 20040319
  Transmission Date: 20050107
  Serious: Yes (Hospitalization)
  Sender: FDA-Public Use
  Company Number: RENA-10900

PATIENT
  Age: 74 Year
  Sex: Male

DRUGS (4)
  1. PHOSBLOCK - 250 MG TABLET [Suspect]
     Indication: HYPERPHOSPHATAEMIA
     Dosage: 3 G DAILY PO
     Route: 048
     Dates: start: 20030904, end: 20031017
  2. DISOPYRAMIDE [Concomitant]
  3. DELAPRIL HYDROCHLORIDE [Concomitant]
  4. MANIDIPINE HYDROCHLORIDE [Concomitant]

REACTIONS (2)
  - COLITIS ISCHAEMIC [None]
  - GASTROINTESTINAL HAEMORRHAGE [None]
